FAERS Safety Report 18623873 (Version 2)
Quarter: 2020Q4

REPORT INFORMATION
  Report Type: Spontaneous
  Country: IT (occurrence: IT)
  Receive Date: 20201216
  Receipt Date: 20201218
  Transmission Date: 20210114
  Serious: Yes (Life-Threatening, Hospitalization, Other)
  Sender: FDA-Public Use
  Company Number: IT-PFIZER INC-2020489235

PATIENT
  Age: 50 Year
  Sex: Female

DRUGS (17)
  1. FILGRASTIM [Suspect]
     Active Substance: FILGRASTIM
     Indication: NEUTROPENIA
     Dosage: 1, DAILY (30MU/0,5ML/DAY)
  2. FILGRASTIM [Suspect]
     Active Substance: FILGRASTIM
     Dosage: TWO VIALS/DAY (60 MU/ DAY)
  3. XGEVA [Suspect]
     Active Substance: DENOSUMAB
     Indication: CHEMOTHERAPY
     Dosage: 120 MG AS A 2-MIN IV INFUSION EVERY 28 DAYS
     Route: 042
     Dates: start: 201507
  4. FLUCONAZOLE. [Concomitant]
     Active Substance: FLUCONAZOLE
     Dosage: 100 MILLIGRAM, QD
  5. XGEVA [Suspect]
     Active Substance: DENOSUMAB
     Indication: METASTASES TO BONE
  6. CEFTRIAXONE SODIUM. [Concomitant]
     Active Substance: CEFTRIAXONE SODIUM
     Dosage: 2 GRAM, QD
  7. LETROZOLE AN [Concomitant]
     Indication: HORMONE THERAPY
     Dosage: 2.5 MG, QD (1/DAY)
     Route: 065
  8. DEXRAZOXANE [DEXRAZOXANE HYDROCHLORIDE] [Concomitant]
     Dosage: 1000 MILLIGRAM/SQ. METER, 1H
  9. PACLITAXEL. [Concomitant]
     Active Substance: PACLITAXEL
     Dosage: 175 MILLIGRAM/SQ. METER, 3H
     Route: 042
  10. TAMOXIFEN [TAMOXIFEN CITRATE] [Concomitant]
     Active Substance: TAMOXIFEN CITRATE
     Dosage: 20 MILLIGRAM, QD
  11. PACLITAXEL. [Concomitant]
     Active Substance: PACLITAXEL
     Dosage: 400 MILLIGRAM/SQ. METER, 24H
     Route: 042
  12. VINORELBINE [Suspect]
     Active Substance: VINORELBINE TARTRATE
     Indication: CHEMOTHERAPY
     Dosage: 25 MG/M2 AS A 6-MIN IV INFUSION ON DAYS 1 AND 3
     Route: 042
     Dates: start: 201507
  13. LEVOLEUCOVORIN CALCIUM. [Concomitant]
     Active Substance: LEVOLEUCOVORIN CALCIUM
     Indication: CHEMOTHERAPY
     Dosage: 100 MG/M2 AS A 3-MIN IV INFUSION ON DAYS 1-3
     Route: 042
     Dates: start: 201507
  14. CAPECITABINE. [Concomitant]
     Active Substance: CAPECITABINE
     Indication: CHEMOTHERAPY
     Dosage: 2500 MG/M2, DAYS 1-14, EVERY THREE WEEKS
     Route: 048
     Dates: start: 201710
  15. 5-FLUOROURACIL [FLUOROURACIL] [Concomitant]
     Active Substance: FLUOROURACIL
     Indication: CHEMOTHERAPY
     Dosage: 350 MG/M2 AS A 3-MIN IV INFUSION ON DAYS 1-3
     Route: 042
     Dates: start: 201507
  16. EPIRUBICIN [Concomitant]
     Active Substance: EPIRUBICIN
     Dosage: 150 MILLIGRAM/SQ. METER, 2H
     Route: 042
  17. VINORELBINE [Concomitant]
     Active Substance: VINORELBINE TARTRATE
     Dosage: 25 MILLIGRAM/SQ. METER, 6-MIN IV INFUSION ON DAYS I
     Route: 042

REACTIONS (19)
  - Pyrexia [Recovered/Resolved]
  - Mucosal inflammation [Unknown]
  - Diarrhoea [Unknown]
  - Blood calcium increased [Recovering/Resolving]
  - Therapy partial responder [Unknown]
  - Thrombocytopenia [Unknown]
  - Hallucination, visual [Unknown]
  - Blood pressure increased [Recovered/Resolved]
  - Asthenia [Unknown]
  - Anaemia [Unknown]
  - Haemoglobin decreased [Recovering/Resolving]
  - Neutrophil count decreased [Recovering/Resolving]
  - Psychomotor hyperactivity [Unknown]
  - Inappropriate schedule of product administration [Unknown]
  - Posterior reversible encephalopathy syndrome [Recovered/Resolved]
  - Neutropenia [Recovered/Resolved]
  - Confusional state [Unknown]
  - Vomiting [Unknown]
  - Condition aggravated [Recovering/Resolving]
